FAERS Safety Report 18683831 (Version 1)
Quarter: 2020Q4

REPORT INFORMATION
  Report Type: Spontaneous
  Country: IT (occurrence: IT)
  Receive Date: 20201230
  Receipt Date: 20201230
  Transmission Date: 20210114
  Serious: Yes (Hospitalization)
  Sender: FDA-Public Use
  Company Number: IT-MYLANLABS-2020M1105564

PATIENT
  Age: 78 Year
  Sex: Female

DRUGS (2)
  1. RISEDRONATE [Suspect]
     Active Substance: RISEDRONATE SODIUM
     Indication: OSTEOPOROSIS
     Dosage: 35 MILLIGRAM, QW
     Route: 048
  2. CLODRONIC ACID [Suspect]
     Active Substance: CLODRONIC ACID
     Indication: OSTEOPOROSIS
     Dosage: 200 MG/4ML EVERY 15 DAYS
     Route: 030

REACTIONS (2)
  - Osteonecrosis of jaw [Recovering/Resolving]
  - Jaw fracture [Recovering/Resolving]
